FAERS Safety Report 4509960-1 (Version None)
Quarter: 2004Q4

REPORT INFORMATION
  Report Type: 
  Country: None (occurrence: None)
  Receive Date: 20041119
  Receipt Date: 20041103
  Transmission Date: 20050328
  Serious: Yes (Hospitalization, Other)
  Sender: FDA-Public Use
  Company Number: DE_041014567

PATIENT
  Age: 85 Year
  Sex: Female
  Weight: 61 kg

DRUGS (3)
  1. YENTREVE (DULOXETINE HYDROCHLORIDE) [Suspect]
     Dates: start: 20041001
  2. AMLODIPINE [Concomitant]
  3. GALENIC /BENAZEPRIL/HYDROCHLOROTHIAZIDE/ [Concomitant]

REACTIONS (4)
  - FALL [None]
  - HAEMATOMA [None]
  - LOSS OF CONSCIOUSNESS [None]
  - SYNCOPE [None]
